FAERS Safety Report 20553675 (Version 3)
Quarter: 2024Q1

REPORT INFORMATION
  Report Type: Spontaneous
  Country: US (occurrence: US)
  Receive Date: 20220304
  Receipt Date: 20240220
  Transmission Date: 20240410
  Serious: No
  Sender: FDA-Public Use
  Company Number: US-PFIZER INC-202101799103

PATIENT
  Age: 67 Year
  Sex: Female

DRUGS (1)
  1. IBRANCE [Suspect]
     Active Substance: PALBOCICLIB
     Dosage: 1 TABLET BY MOUTH ONCE DAILY WITH OR WITHOUT FOOD FOR 21 DAYS, FOLLOWED BY 7 DAYS OFF
     Route: 048
     Dates: start: 20200107

REACTIONS (1)
  - Alopecia [Unknown]
